FAERS Safety Report 20222077 (Version 1)
Quarter: 2021Q4

REPORT INFORMATION
  Report Type: Spontaneous
  Country: US (occurrence: None)
  Receive Date: 20211222
  Receipt Date: 20211222
  Transmission Date: 20220303
  Serious: No
  Sender: FDA-Public Use
  Company Number: None

PATIENT
  Age: 72 Year
  Sex: Female
  Weight: 76 kg

DRUGS (16)
  1. CAPECITABINE [Suspect]
     Active Substance: CAPECITABINE
     Indication: Breast cancer
     Dosage: FREQUENCY : TWICE A DAY;?
     Route: 048
     Dates: start: 20211207, end: 20211222
  2. Acetaminophen Oral Tablet 325 MG [Concomitant]
  3. Anastrozole Oral Tablet 1 MG [Concomitant]
  4. Atenolol Oral Tablet 50 MG [Concomitant]
  5. Donepezil HCl Oral Tablet 5 MG [Concomitant]
  6. DULoxetine HCl Oral Capsule Delayed [Concomitant]
  7. Fenofibrate Oral Tablet 48 MG [Concomitant]
  8. Eliquis Oral Tablet 5 MG [Concomitant]
  9. Ferrous Sulfate Oral Tablet 325 (65 [Concomitant]
  10. metFORMIN HCl Oral Tablet 500 MG [Concomitant]
  11. Pravastatin Sodium Oral Tablet 20 M [Concomitant]
  12. Pregabalin Oral Capsule 75 MG [Concomitant]
  13. Telmisartan Oral Tablet 40 MG [Concomitant]
  14. Vitamin B12-Folic Acid Oral Tablet [Concomitant]
  15. Vitamin C Oral Tablet 1000 MG [Concomitant]
  16. Vitamin D3-Vitamin C Oral Capsule 1 [Concomitant]

REACTIONS (4)
  - Fall [None]
  - Joint injury [None]
  - Diarrhoea [None]
  - Peripheral swelling [None]

NARRATIVE: CASE EVENT DATE: 20211222
